FAERS Safety Report 5012941-5 (Version None)
Quarter: 2006Q2

REPORT INFORMATION
  Report Type: 
  Country: None (occurrence: None)
  Receive Date: 20060525
  Receipt Date: 20060509
  Transmission Date: 20061013
  Serious: Yes (Death)
  Sender: FDA-Public Use
  Company Number: US200605002180

PATIENT
  Age: 30 Year
  Sex: Male

DRUGS (1)
  1. XIGRIS [Suspect]
     Indication: SHOCK
     Dosage: INTRAVENOUS
     Route: 042

REACTIONS (2)
  - HAEMORRHAGE INTRACRANIAL [None]
  - PLATELET COUNT DECREASED [None]
